FAERS Safety Report 8365120-8 (Version None)
Quarter: 2012Q2

REPORT INFORMATION
  Report Type: 
  Country: None (occurrence: None)
  Receive Date: 20120516
  Receipt Date: 20120511
  Transmission Date: 20120825
  Serious: No
  Sender: FDA-Public Use
  Company Number: US-PFIZER INC-2012117565

PATIENT
  Sex: Male
  Weight: 83 kg

DRUGS (14)
  1. ASPIRIN [Concomitant]
     Dosage: 81 MG, 1X/DAY
  2. VITAMIN D [Concomitant]
     Dosage: 50000 IU, WEEKLY
  3. SIMVASTATIN [Concomitant]
     Indication: BLOOD CHOLESTEROL INCREASED
     Dosage: 20 MG, UNK
  4. NEURONTIN [Suspect]
     Indication: DIABETIC NEUROPATHY
     Dosage: TWO CAPSULES OF 100MG, TWO TIMES A DAY
     Route: 048
     Dates: start: 20090101
  5. LISINOPRIL [Concomitant]
     Dosage: 5 MG, 1X/DAY
  6. NEURONTIN [Suspect]
     Dosage: SIX CAPSULES OF 100MG TWO TIMES A DAY
     Route: 048
  7. VITAMIN B COMPLEX CAP [Concomitant]
     Dosage: UNK, 2X/DAY
  8. LANTUS [Concomitant]
     Dosage: UNK
  9. ATENOLOL [Concomitant]
     Dosage: 50 MG, 1X/DAY
  10. NOVOLOG [Concomitant]
     Dosage: UNK
  11. NEURONTIN [Suspect]
     Dosage: FOUR CAPSULES OF 100MG TWO TIMES A DAY
     Route: 048
  12. HYDROCHLOROTHIAZIDE [Concomitant]
     Dosage: UNK, 1X/DAY
  13. OMEPRAZOLE [Concomitant]
     Dosage: UNK, 1X/DAY
  14. NEURONTIN [Suspect]
     Dosage: UNK
     Route: 048

REACTIONS (2)
  - DRUG INEFFECTIVE [None]
  - SPEECH DISORDER [None]
